FAERS Safety Report 19603365 (Version 1)
Quarter: 2021Q3

REPORT INFORMATION
  Report Type: Spontaneous
  Country: CN (occurrence: CN)
  Receive Date: 20210723
  Receipt Date: 20210723
  Transmission Date: 20211014
  Serious: Yes (Hospitalization)
  Sender: FDA-Public Use
  Company Number: CN-ASTRAZENECA-2021A625509

PATIENT
  Age: 81 Year
  Sex: Male
  Weight: 80 kg

DRUGS (2)
  1. RADIOTHERAPY [Concomitant]
     Active Substance: RADIATION THERAPY
     Dates: end: 202104
  2. IMFINZI [Suspect]
     Active Substance: DURVALUMAB
     Indication: NON-SMALL CELL LUNG CANCER STAGE III
     Dosage: THE LAST DOSE OF MEDICATION WAS 740MG / PERIOD
     Route: 042
     Dates: start: 20190218, end: 20210309

REACTIONS (2)
  - Radiation pneumonitis [Recovering/Resolving]
  - Nasopharyngitis [Unknown]
